FAERS Safety Report 24226168 (Version 1)
Quarter: 2024Q3

REPORT INFORMATION
  Report Type: Spontaneous
  Country: US (occurrence: US)
  Receive Date: 20240820
  Receipt Date: 20240820
  Transmission Date: 20241016
  Serious: No
  Sender: APOTEX
  Company Number: US-APOTEX-2024AP009166

PATIENT

DRUGS (1)
  1. FLUTICASONE PROPIONATE [Suspect]
     Active Substance: FLUTICASONE PROPIONATE
     Indication: Allergic sinusitis
     Dosage: UNK
     Route: 065

REACTIONS (3)
  - Panic attack [Recovered/Resolved]
  - Sleep terror [Recovered/Resolved]
  - Anxiety [Recovered/Resolved]
